FAERS Safety Report 14328988 (Version 1)
Quarter: 2017Q4

REPORT INFORMATION
  Report Type: Spontaneous
  Country: US (occurrence: US)
  Receive Date: 20171227
  Receipt Date: 20171227
  Transmission Date: 20180321
  Serious: Yes (Hospitalization)
  Sender: FDA-Public Use
  Company Number: US-PRAGMA PHARMACEUTICALS, LLC-2017PRG00082

PATIENT
  Sex: Female

DRUGS (6)
  1. KEFLEX [Suspect]
     Active Substance: CEPHALEXIN
     Indication: CENTRAL NERVOUS SYSTEM LESION
  2. KEFLEX [Suspect]
     Active Substance: CEPHALEXIN
     Indication: INFLAMMATION
  3. KEFLEX [Suspect]
     Active Substance: CEPHALEXIN
     Indication: INFECTION
  4. KEFLEX [Suspect]
     Active Substance: CEPHALEXIN
     Indication: CYST
     Dosage: UNK
     Dates: start: 201703
  5. PREMARIN [Concomitant]
     Active Substance: ESTROGENS, CONJUGATED
     Dosage: 0.625 MG, 1X/DAY
     Dates: start: 1993
  6. LYRICA [Concomitant]
     Active Substance: PREGABALIN
     Dosage: 75 MG, UNK

REACTIONS (6)
  - Inflammation [Unknown]
  - Infection [Unknown]
  - Antinuclear antibody positive [Unknown]
  - Drug ineffective [Unknown]
  - White blood cell count decreased [Unknown]
  - Hypersensitivity [Unknown]

NARRATIVE: CASE EVENT DATE: 2017
